FAERS Safety Report 9307441 (Version 5)
Quarter: 2014Q1

REPORT INFORMATION
  Report Type: Spontaneous
  Country: US (occurrence: US)
  Receive Date: 20130524
  Receipt Date: 20140319
  Transmission Date: 20141002
  Serious: Yes (Other)
  Sender: FDA-Public Use
  Company Number: US-JNJFOC-20130511795

PATIENT
  Sex: Male
  Weight: 77.11 kg

DRUGS (4)
  1. RISPERDAL [Suspect]
     Indication: SCHIZOPHRENIA
     Route: 048
     Dates: start: 2005
  2. RISPERDAL CONSTA [Suspect]
     Indication: SCHIZOPHRENIA
     Route: 030
     Dates: start: 2005
  3. RISPERDAL M-TAB [Suspect]
     Indication: PSYCHOTIC DISORDER
     Route: 048
     Dates: start: 200808
  4. INVEGA SUSTENNA [Suspect]
     Indication: SCHIZOPHRENIA
     Route: 065
     Dates: start: 2012

REACTIONS (6)
  - Abnormal weight gain [Unknown]
  - Pigmentation disorder [Unknown]
  - Emotional distress [Unknown]
  - Gynaecomastia [Unknown]
  - Rash [Unknown]
  - Blood cholesterol increased [Unknown]
